FAERS Safety Report 17580963 (Version 1)
Quarter: 2020Q1

REPORT INFORMATION
  Report Type: Spontaneous
  Country: US (occurrence: US)
  Receive Date: 20200321
  Receipt Date: 20200321
  Transmission Date: 20200409
  Serious: Yes (Hospitalization)
  Sender: FDA-Public Use
  Company Number: None

PATIENT
  Age: 57 Year
  Sex: Female
  Weight: 60.6 kg

DRUGS (4)
  1. RITUXIMAB (MOAB C2B8 ANTI CD20, CHIMERIC) [Suspect]
     Active Substance: RITUXIMAB
     Dates: end: 20191216
  2. ONCASPAR [Suspect]
     Active Substance: PEGASPARGASE
     Dates: end: 20191216
  3. ETOPOSIDE (VP-16) [Suspect]
     Active Substance: ETOPOSIDE
     Dates: end: 20191215
  4. CYTARABINE. [Suspect]
     Active Substance: CYTARABINE
     Dates: end: 20191215

REACTIONS (7)
  - Abdominal pain [None]
  - Liver injury [None]
  - Pleural effusion [None]
  - Infectious pleural effusion [None]
  - Disease recurrence [None]
  - Coccidioidomycosis [None]
  - Febrile neutropenia [None]

NARRATIVE: CASE EVENT DATE: 20200103
